FAERS Safety Report 8936727 (Version 1)
Quarter: 2012Q4

REPORT INFORMATION
  Report Type: Report from Study
  Country: CH (occurrence: CH)
  Receive Date: 20121130
  Receipt Date: 20121130
  Transmission Date: 20130627
  Serious: Yes (Hospitalization)
  Sender: FDA-Public Use
  Company Number: CH-ROCHE-1158474

PATIENT
  Age: 62 Year
  Sex: Female
  Weight: 48 kg

DRUGS (5)
  1. RIBAVIRIN [Suspect]
     Indication: HEPATITIS C
     Route: 048
     Dates: start: 20121017
  2. CANDESARTAN [Suspect]
     Indication: HYPERTENSION
     Route: 048
     Dates: end: 20121109
  3. AMLODIPIN [Suspect]
     Indication: HYPERTENSION
     Route: 048
  4. PEG-INTERFERON ALFA 2A [Suspect]
     Indication: HEPATITIS C
     Route: 058
     Dates: start: 20121017
  5. EPOETIN BETA [Suspect]
     Indication: ANAEMIA
     Dosage: 10000
     Route: 058
     Dates: start: 20121107

REACTIONS (1)
  - Nervous system disorder [Recovered/Resolved]
